FAERS Safety Report 9022563 (Version 1)
Quarter: 2013Q1

REPORT INFORMATION
  Report Type: Spontaneous
  Country: US (occurrence: US)
  Receive Date: 20130118
  Receipt Date: 20130118
  Transmission Date: 20140127
  Serious: No
  Sender: FDA-Public Use
  Company Number: US-GLAXOSMITHKLINE-A0979046A

PATIENT
  Age: 55 Year
  Sex: Male

DRUGS (2)
  1. PROMACTA [Suspect]
     Indication: PRODUCT USED FOR UNKNOWN INDICATION
     Dosage: 50MG PER DAY
     Route: 048
  2. TRAMADOL [Concomitant]

REACTIONS (2)
  - Pain in extremity [Not Recovered/Not Resolved]
  - Hyperaesthesia [Not Recovered/Not Resolved]
